FAERS Safety Report 25760320 (Version 1)
Quarter: 2025Q3

REPORT INFORMATION
  Report Type: Spontaneous
  Country: US (occurrence: None)
  Receive Date: 20250903
  Receipt Date: 20250903
  Transmission Date: 20251021
  Serious: Yes (Hospitalization)
  Sender: FDA-CTU
  Company Number: None

PATIENT
  Age: 78 Year
  Sex: Female

DRUGS (1)
  1. HUMIRA [Suspect]
     Active Substance: ADALIMUMAB
     Indication: Rheumatoid arthritis
     Dosage: FREQUENCY : EVERY OTHER WEEK;?

REACTIONS (12)
  - Multiple injuries [None]
  - Pneumonia viral [None]
  - Pain in extremity [None]
  - Back pain [None]
  - Neck pain [None]
  - Arthralgia [None]
  - Pain in extremity [None]
  - Diarrhoea [None]
  - Incontinence [None]
  - Therapy interrupted [None]
  - Activities of daily living decreased [None]
  - General physical condition abnormal [None]
